FAERS Safety Report 7715804-7 (Version None)
Quarter: 2011Q3

REPORT INFORMATION
  Report Type: 
  Country: None (occurrence: None)
  Receive Date: 20110829
  Receipt Date: 20110829
  Transmission Date: 20111222
  Serious: Yes (Life-Threatening)
  Sender: FDA-Public Use
  Company Number: None

PATIENT
  Age: 62 Year
  Sex: Male
  Weight: 98 kg

DRUGS (1)
  1. PROSTIGMIN BROMIDE [Suspect]
     Indication: NEUROMUSCULAR BLOCKADE REVERSAL
     Dosage: 0.4MG
     Route: 040
     Dates: start: 20110825, end: 20110825

REACTIONS (2)
  - PRODUCT QUALITY ISSUE [None]
  - ATRIOVENTRICULAR BLOCK SECOND DEGREE [None]
